FAERS Safety Report 7747363-7 (Version None)
Quarter: 2011Q3

REPORT INFORMATION
  Report Type: 
  Country: None (occurrence: None)
  Receive Date: 20110913
  Receipt Date: 20110831
  Transmission Date: 20111222
  Serious: Yes (Hospitalization)
  Sender: FDA-Public Use
  Company Number: US-GLAXOSMITHKLINE-A0897705A

PATIENT
  Age: 73 Year
  Sex: Male
  Weight: 77.7 kg

DRUGS (11)
  1. AVANDAMET [Suspect]
     Indication: TYPE 2 DIABETES MELLITUS
     Route: 048
     Dates: start: 20051219
  2. CRESTOR [Concomitant]
  3. AVANDARYL [Suspect]
     Indication: DIABETES MELLITUS
     Route: 048
     Dates: start: 20060401
  4. MICARDIS [Concomitant]
  5. SYNTHROID [Concomitant]
  6. AMARYL [Concomitant]
  7. AVANDIA [Suspect]
     Indication: DIABETES MELLITUS
     Route: 048
     Dates: end: 20060401
  8. PROTONIX [Concomitant]
  9. METFORMIN HCL [Concomitant]
  10. HYZAAR [Concomitant]
  11. FLOMAX [Concomitant]

REACTIONS (4)
  - CORONARY ARTERY DISEASE [None]
  - CHEST PAIN [None]
  - IMPLANTABLE DEFIBRILLATOR INSERTION [None]
  - ISCHAEMIC CARDIOMYOPATHY [None]
